FAERS Safety Report 17571336 (Version 1)
Quarter: 2020Q1

REPORT INFORMATION
  Report Type: Spontaneous
  Country: MY (occurrence: MY)
  Receive Date: 20200323
  Receipt Date: 20200323
  Transmission Date: 20200409
  Serious: Yes (Other)
  Sender: FDA-Public Use
  Company Number: MY-TASMAN PHARMA, INC.-2020TSM00125

PATIENT
  Age: 50 Year
  Sex: Male

DRUGS (3)
  1. CLOZAPINE. [Suspect]
     Active Substance: CLOZAPINE
     Indication: TARDIVE DYSKINESIA
     Dosage: 25 MG, 1X/DAY
     Route: 048
  2. CLOZAPINE. [Suspect]
     Active Substance: CLOZAPINE
     Dosage: 100 MG, 1X/DAY
  3. SODIUM VALPROATE [Concomitant]
     Active Substance: VALPROATE SODIUM
     Indication: SCHIZOAFFECTIVE DISORDER
     Dosage: 500 MG, BD
     Route: 065

REACTIONS (3)
  - Myocarditis [Recovered/Resolved]
  - Pericarditis [Recovered/Resolved]
  - Electrocardiogram ST segment elevation [Recovered/Resolved]
